FAERS Safety Report 9539335 (Version 1)
Quarter: 2013Q3

REPORT INFORMATION
  Report Type: Spontaneous
  Country: FR (occurrence: FR)
  Receive Date: 20130920
  Receipt Date: 20130920
  Transmission Date: 20140515
  Serious: Yes (Hospitalization)
  Sender: FDA-Public Use
  Company Number: PHHY2013FR104504

PATIENT
  Age: 78 Year
  Sex: Male

DRUGS (2)
  1. ACLASTA [Suspect]
     Indication: HYPERCALCAEMIA
     Dosage: 5 MG, UNK
     Route: 042
     Dates: start: 20111217
  2. ACLASTA [Suspect]
     Indication: OFF LABEL USE
     Dosage: 5 MG, UNK
     Route: 042
     Dates: start: 20111218

REACTIONS (2)
  - Incorrect drug administration rate [Unknown]
  - Wrong drug administered [Unknown]
